FAERS Safety Report 20035636 (Version 4)
Quarter: 2021Q4

REPORT INFORMATION
  Report Type: Report from Study
  Country: US (occurrence: US)
  Receive Date: 20211104
  Receipt Date: 20211213
  Transmission Date: 20220303
  Serious: Yes (Hospitalization)
  Sender: FDA-Public Use
  Company Number: US-GILEAD-2021-0554264

PATIENT
  Age: 57 Year
  Sex: Male

DRUGS (6)
  1. AMBRISENTAN [Suspect]
     Active Substance: AMBRISENTAN
     Indication: Pulmonary arterial hypertension
     Dosage: 10 MG, QD
     Route: 065
     Dates: start: 201703
  2. REMODULIN [Suspect]
     Active Substance: TREPROSTINIL
     Indication: Pulmonary arterial hypertension
     Dosage: UNK
     Route: 065
     Dates: start: 20201124
  3. REMODULIN [Suspect]
     Active Substance: TREPROSTINIL
     Dosage: 49.25 NG, Q1SECOND
     Route: 065
     Dates: start: 20191030
  4. REMODULIN [Suspect]
     Active Substance: TREPROSTINIL
     Dosage: 29.25 NG, Q1SECOND
     Route: 065
     Dates: start: 201910
  5. REMODULIN [Suspect]
     Active Substance: TREPROSTINIL
     Dosage: 42.25 NG, Q1SECOND
     Route: 065
     Dates: start: 201911
  6. SILDENAFIL CITRATE [Suspect]
     Active Substance: SILDENAFIL CITRATE
     Indication: Pulmonary arterial hypertension
     Dosage: 40 MG, TID
     Route: 065
     Dates: start: 201805

REACTIONS (7)
  - Vomiting [Unknown]
  - Dyspnoea [Not Recovered/Not Resolved]
  - Nausea [Unknown]
  - Screaming [Not Recovered/Not Resolved]
  - Emotional disorder [Not Recovered/Not Resolved]
  - Dyspnoea [Not Recovered/Not Resolved]
  - Product dose omission in error [Not Recovered/Not Resolved]
